FAERS Safety Report 19684256 (Version 1)
Quarter: 2021Q3

REPORT INFORMATION
  Report Type: Spontaneous
  Country: US (occurrence: US)
  Receive Date: 20210810
  Receipt Date: 20210810
  Transmission Date: 20211014
  Serious: Yes (Hospitalization)
  Sender: FDA-Public Use
  Company Number: None

PATIENT
  Age: 64 Year
  Sex: Male
  Weight: 67 kg

DRUGS (6)
  1. FILGRASTIM (NEUPOGEN) INJECTION [Concomitant]
     Dates: start: 20210625, end: 20210630
  2. TECARTUS [Suspect]
     Active Substance: BREXUCABTAGENE AUTOLEUCEL
     Indication: MANTLE CELL LYMPHOMA
     Dosage: ?          OTHER FREQUENCY:ONCE;?
     Route: 041
     Dates: start: 20210624, end: 20210624
  3. ACYCLOVIR (ZOVIRAX) [Concomitant]
     Dates: start: 20210624, end: 20210810
  4. PIPERACILLIN?TAZOBACTAM (ZOSYN) 3.375 GRAM/50 ML DEXTROSE IVPB [Concomitant]
     Dates: start: 20210628, end: 20210703
  5. KEPPRA [Concomitant]
     Active Substance: LEVETIRACETAM
     Dates: start: 20210624, end: 20210810
  6. DECADRON [Concomitant]
     Active Substance: DEXAMETHASONE
     Dates: start: 20210628, end: 20210714

REACTIONS (3)
  - Disease recurrence [None]
  - Immune effector cell-associated neurotoxicity syndrome [None]
  - Cytokine release syndrome [None]

NARRATIVE: CASE EVENT DATE: 20210624
